FAERS Safety Report 7490021-7 (Version None)
Quarter: 2011Q2

REPORT INFORMATION
  Report Type: 
  Country: None (occurrence: None)
  Receive Date: 20110519
  Receipt Date: 20110509
  Transmission Date: 20111010
  Serious: Yes (Death, Other)
  Sender: FDA-Public Use
  Company Number: NL-GENZYME-200821167GPV

PATIENT
  Age: 59 Year
  Sex: Male

DRUGS (39)
  1. CAMPATH [Suspect]
     Dosage: 10 MG, DAY 5
     Route: 058
  2. CAMPATH [Suspect]
     Dosage: 30 MG, DAYS 1, 5, 10
     Route: 058
     Dates: end: 20060401
  3. CYCLOPHOSPHAMIDE [Suspect]
     Dosage: 750 MG/M2, ONCE DAY 1
     Route: 042
  4. DOXORUBICIN HCL [Suspect]
     Dosage: 50 MG/M2, ONCE DAY 1
     Route: 042
     Dates: end: 20060401
  5. METHYLPREDNISOLONE [Suspect]
     Dosage: 100 MG, QDX5, DAYS 1-5
     Route: 048
  6. METHYLPREDNISOLONE [Suspect]
     Dosage: 100 MG, QDX5, DAYS 1-5
     Route: 048
     Dates: end: 20060401
  7. ALLOPURINOL [Concomitant]
     Indication: PROPHYLAXIS
     Dosage: 300 MG, UNK
  8. CAMPATH [Suspect]
     Dosage: 30 MG, DAYS 1, 5, 10
     Route: 058
  9. CAMPATH [Suspect]
     Dosage: 30 MG, DAYS 1, 5, 10
     Route: 058
  10. DOXORUBICIN HCL [Suspect]
     Dosage: 50 MG/M2, ONCE DAY 1
     Route: 042
  11. VINCRISTINE [Suspect]
     Dosage: 1.4 MG/M2, ONCE DAY 1
     Route: 042
  12. VINCRISTINE [Suspect]
     Dosage: 1.4 MG/M2, ONCE DAY 1
     Route: 042
     Dates: end: 20060401
  13. METHYLPREDNISOLONE [Suspect]
     Dosage: 100 MG, QDX5, DAYS 1-5
     Route: 048
  14. PEGFILGRASTIM [Concomitant]
     Indication: PRODUCT USED FOR UNKNOWN INDICATION
     Dosage: 6 MG, ONCE, DAY 2
     Route: 058
     Dates: end: 20060401
  15. CAMPATH [Suspect]
     Dosage: 30 MG, DAY 10
     Route: 058
  16. DOXORUBICIN HCL [Suspect]
     Indication: ANGIOIMMUNOBLASTIC T-CELL LYMPHOMA STAGE III
     Dosage: 50 MG/M2, ONCE DAY 1
     Route: 042
  17. DOXORUBICIN HCL [Suspect]
     Dosage: 50 MG/M2, ONCE DAY 1
     Route: 042
  18. VINCRISTINE [Suspect]
     Dosage: 1.4 MG/M2, ONCE DAY 1
     Route: 042
  19. METHYLPREDNISOLONE [Suspect]
     Indication: ANGIOIMMUNOBLASTIC T-CELL LYMPHOMA STAGE III
     Dosage: 100 MG, QDX5, DAYS 1-5
     Route: 048
  20. COTRIM [Concomitant]
     Indication: INFECTION PROPHYLAXIS
     Dosage: 480 MG, BID, 3X/W
  21. ACETAMINOPHEN [Concomitant]
     Indication: PREMEDICATION
     Dosage: 1000 MG, UNK
  22. CYCLOPHOSPHAMIDE [Suspect]
     Indication: ANGIOIMMUNOBLASTIC T-CELL LYMPHOMA STAGE III
     Dosage: 750 MG/M2, ONCE DAY 1
     Route: 042
  23. VINCRISTINE [Suspect]
     Indication: ANGIOIMMUNOBLASTIC T-CELL LYMPHOMA STAGE III
     Dosage: 1.4 MG/M2, ONCE DAY 1
     Route: 042
  24. CYCLOPHOSPHAMIDE [Suspect]
     Dosage: 750 MG/M2, ONCE DAY 1
     Route: 042
  25. DOXORUBICIN HCL [Suspect]
     Dosage: 50 MG/M2, ONCE DAY 1
     Route: 042
  26. VINCRISTINE [Suspect]
     Dosage: 1.4 MG/M2, ONCE DAY 1
     Route: 042
  27. CAMPATH [Suspect]
     Indication: ANGIOIMMUNOBLASTIC T-CELL LYMPHOMA STAGE III
     Dosage: 3 MG, DAY 1
     Route: 058
  28. CYCLOPHOSPHAMIDE [Suspect]
     Dosage: 750 MG/M2, ONCE DAY 1
     Route: 042
  29. CYCLOPHOSPHAMIDE [Suspect]
     Dosage: 750 MG/M2, ONCE DAY 1
     Route: 042
  30. DOXORUBICIN HCL [Suspect]
     Dosage: 50 MG/M2, ONCE DAY 1
     Route: 042
  31. VINCRISTINE [Suspect]
     Dosage: 1.4 MG/M2, ONCE DAY 1
     Route: 042
  32. METHYLPREDNISOLONE [Suspect]
     Dosage: 100 MG, QDX5, DAYS 1-5
     Route: 048
  33. VALACICLOVIR [Concomitant]
     Indication: ANTIVIRAL PROPHYLAXIS
     Dosage: 500 MG, BID
  34. FLUCONAZOLE [Concomitant]
     Indication: ANTIFUNGAL PROPHYLAXIS
     Dosage: UNK
  35. CAMPATH [Suspect]
     Dosage: 30 MG, DAYS 1, 5, 10
     Route: 058
  36. METHYLPREDNISOLONE [Suspect]
     Dosage: 100 MG, QDX5, DAYS 1-5
     Route: 048
  37. CAMPATH [Suspect]
     Dosage: 30 MG, DAYS 1, 5, 10
     Route: 058
  38. CYCLOPHOSPHAMIDE [Suspect]
     Dosage: 750 MG/M2, ONCE DAY 1
     Route: 042
     Dates: end: 20060401
  39. ANTIHISTAMINES [Concomitant]
     Indication: PREMEDICATION

REACTIONS (4)
  - ANGIOIMMUNOBLASTIC T-CELL LYMPHOMA RECURRENT [None]
  - LYMPHOPROLIFERATIVE DISORDER [None]
  - CYTOMEGALOVIRUS CHORIORETINITIS [None]
  - EPSTEIN-BARR VIRUS INFECTION [None]
